FAERS Safety Report 21991287 (Version 3)
Quarter: 2023Q2

REPORT INFORMATION
  Report Type: Report from Study
  Country: DE (occurrence: DE)
  Receive Date: 20230214
  Receipt Date: 20230411
  Transmission Date: 20230722
  Serious: Yes (Hospitalization)
  Sender: FDA-Public Use
  Company Number: DE-JNJFOC-20230134044

PATIENT
  Sex: Male
  Weight: 93 kg

DRUGS (5)
  1. BORTEZOMIB [Suspect]
     Active Substance: BORTEZOMIB
     Indication: Plasma cell myeloma
     Dosage: 1.3 MG/M2 (LAST DOSE BEFORE EVENT ON 22-DEC-2022)
     Route: 042
     Dates: start: 20221114, end: 20221222
  2. DEXAMETHASONE [Suspect]
     Active Substance: DEXAMETHASONE
     Indication: Plasma cell myeloma
     Dosage: 20 MG(LAST DOSE BEFORE EVENT WAS ON 22-DEC-2022)
     Route: 042
     Dates: start: 20221114, end: 20221222
  3. DEXAMETHASONE [Suspect]
     Active Substance: DEXAMETHASONE
     Dosage: 20 MG(LAST DOSE BEFORE EVENT WAS ON 22-DEC-2022)
     Route: 042
     Dates: start: 20221115, end: 20221220
  4. THALIDOMIDE [Suspect]
     Active Substance: THALIDOMIDE
     Indication: Plasma cell myeloma
     Dosage: 100 MG(LAST DOSE BEFORE EVENT WAS ON 24-DEC-2022)
     Route: 048
     Dates: start: 20221114, end: 20221224
  5. DARATUMUMAB\HYALURONIDASE-FIHJ [Suspect]
     Active Substance: DARATUMUMAB\HYALURONIDASE-FIHJ
     Indication: Plasma cell myeloma
     Dosage: 1800 MG(LAST DOSE BEFORE EVENT WAS ON 19-DEC-2022)
     Route: 058
     Dates: start: 20221114, end: 20221219

REACTIONS (1)
  - COVID-19 [Recovering/Resolving]

NARRATIVE: CASE EVENT DATE: 20221223
